FAERS Safety Report 16836667 (Version 1)
Quarter: 2019Q3

REPORT INFORMATION
  Report Type: Report from Study
  Country: IT (occurrence: IT)
  Receive Date: 20190922
  Receipt Date: 20190922
  Transmission Date: 20191005
  Serious: Yes (Other)
  Sender: FDA-Public Use
  Company Number: IT-TEVA-706373ACC

PATIENT
  Age: 20 Year
  Sex: Female

DRUGS (1)
  1. PAROXETINE. [Suspect]
     Active Substance: PAROXETINE
     Indication: DRUG ABUSE
     Dosage: 10 DF TOTAL
     Route: 048
     Dates: start: 20160916, end: 20160916

REACTIONS (4)
  - Toxicity to various agents [Recovering/Resolving]
  - Vomiting [Recovering/Resolving]
  - Drug abuse [Recovering/Resolving]
  - Agitation [Recovering/Resolving]

NARRATIVE: CASE EVENT DATE: 20160917
